FAERS Safety Report 6619343-6 (Version None)
Quarter: 2010Q1

REPORT INFORMATION
  Report Type: 
  Country: None (occurrence: None)
  Receive Date: 20100308
  Receipt Date: 20090713
  Transmission Date: 20100710
  Serious: No
  Sender: FDA-Public Use
  Company Number: US-TYCO HEALTHCARE/MALLINCKRODT-T200901368

PATIENT
  Age: 92 Year
  Sex: Female
  Weight: 54.422 kg

DRUGS (2)
  1. RESTORIL [Suspect]
     Indication: SLEEP DISORDER
     Dosage: 30 MG, QD (HS)
     Route: 048
     Dates: start: 20070101
  2. NEURONTIN [Concomitant]
     Indication: NEUROPATHY PERIPHERAL
     Dosage: UNK
     Route: 048
     Dates: start: 20090720

REACTIONS (1)
  - SLEEP-RELATED EATING DISORDER [None]
